FAERS Safety Report 6140639-9 (Version None)
Quarter: 2009Q2

REPORT INFORMATION
  Report Type: 
  Country: None (occurrence: None)
  Receive Date: 20090402
  Receipt Date: 20080530
  Transmission Date: 20091009
  Serious: Yes (Death)
  Sender: FDA-Public Use
  Company Number: US-ASTRAZENECA-2006UW27327

PATIENT
  Age: 17083 Day
  Sex: Female
  Weight: 40.8 kg

DRUGS (14)
  1. SEROQUEL [Suspect]
     Indication: DEPRESSION
     Route: 048
     Dates: start: 20020101, end: 20050101
  2. SEROQUEL [Suspect]
     Indication: ANXIETY
     Route: 048
     Dates: start: 20020101, end: 20050101
  3. SEROQUEL [Suspect]
     Dosage: 100-300 MG
     Route: 048
     Dates: start: 20020101
  4. SEROQUEL [Suspect]
     Dosage: 100-300 MG
     Route: 048
     Dates: start: 20020101
  5. XANAX [Concomitant]
  6. PAXIL [Concomitant]
  7. VICODIN [Concomitant]
  8. NORCO [Concomitant]
  9. ENALAP [Concomitant]
  10. PREMARIN [Concomitant]
  11. PLAVIX [Concomitant]
  12. METOCLOPRAM [Concomitant]
  13. PROTONIX [Concomitant]
  14. SUCRALFATE [Concomitant]

REACTIONS (10)
  - ANXIETY [None]
  - BACK PAIN [None]
  - DEATH [None]
  - DIABETES MELLITUS [None]
  - DIARRHOEA [None]
  - DYSPHORIA [None]
  - DYSTHYMIC DISORDER [None]
  - PAIN IN EXTREMITY [None]
  - PHOBIA [None]
  - WEIGHT DECREASED [None]
